FAERS Safety Report 9746363 (Version 1)
Quarter: 2013Q4

REPORT INFORMATION
  Report Type: Spontaneous
  Country: US (occurrence: US)
  Receive Date: 20131211
  Receipt Date: 20131211
  Transmission Date: 20140711
  Serious: Yes (Other)
  Sender: FDA-Public Use
  Company Number: US-SA-2013SA128963

PATIENT
  Age: 15 Year
  Sex: Female

DRUGS (1)
  1. DDAVP [Suspect]
     Indication: BRAIN NEOPLASM
     Route: 065

REACTIONS (1)
  - Anuria [Recovered/Resolved]
